FAERS Safety Report 4851339-7 (Version None)
Quarter: 2005Q4

REPORT INFORMATION
  Report Type: 
  Country: None (occurrence: None)
  Receive Date: 20051207
  Receipt Date: 20051125
  Transmission Date: 20060501
  Serious: Yes (Life-Threatening, Hospitalization)
  Sender: FDA-Public Use
  Company Number: GBWYE179128NOV05

PATIENT
  Age: 45 Year
  Sex: Female

DRUGS (4)
  1. IBUPROFEN [Suspect]
     Indication: BACK PAIN
     Dosage: 400 MG AS REQUIRED U P TO 2.4 G PER DAY; ORAL
     Route: 048
     Dates: start: 20020101, end: 20051019
  2. ACETAMINOPHEN W/ CODEINE [Concomitant]
  3. GTN (GLYCERYL TRINITRATE) [Concomitant]
  4. EVENINGPRIMOSE (EVENING PRIMOSE OIL) [Concomitant]

REACTIONS (4)
  - ANGINA PECTORIS [None]
  - MICROCYTIC ANAEMIA [None]
  - OEDEMA PERIPHERAL [None]
  - OVERDOSE [None]
